FAERS Safety Report 23053145 (Version 1)
Quarter: 2023Q4

REPORT INFORMATION
  Report Type: Spontaneous
  Country: ES (occurrence: ES)
  Receive Date: 20231011
  Receipt Date: 20231011
  Transmission Date: 20240110
  Serious: Yes (Life-Threatening, Hospitalization, Other)
  Sender: FDA-Public Use
  Company Number: None

PATIENT
  Age: 91 Year
  Sex: Female

DRUGS (18)
  1. OMEPRAZOLE [Interacting]
     Active Substance: OMEPRAZOLE
     Indication: Hiatus hernia
     Dosage: 0-0-1?DAILY DOSE: 20 MILLIGRAM
     Route: 048
     Dates: start: 20190327
  2. CLONAZEPAM [Suspect]
     Active Substance: CLONAZEPAM
     Dosage: 0-0-1 ?DAILY DOSE: 0.5 MILLIGRAM
  3. PREDNISONE [Suspect]
     Active Substance: PREDNISONE
     Dosage: DECREASE IN THE DOSE
     Dates: start: 202306
  4. PREDNISONE [Suspect]
     Active Substance: PREDNISONE
     Dosage: 1-0-0?DAILY DOSE: 5 MILLIGRAM
  5. METHOTREXATE [Interacting]
     Active Substance: METHOTREXATE
     Indication: Rheumatoid arthritis
     Dosage: INJECTABLE 0.4 ML PRE-FILLED SYRINGE
     Route: 058
     Dates: start: 20180424, end: 20230828
  6. ALDACTONE [Suspect]
     Active Substance: SPIRONOLACTONE
     Indication: Oedema
     Dosage: 0-1-0?DAILY DOSE: 25 MILLIGRAM
     Route: 048
     Dates: start: 20230609, end: 20230727
  7. FUROSEMIDE [Suspect]
     Active Substance: FUROSEMIDE
     Indication: Oedema
     Dosage: 1-0-0?DAILY DOSE: 40 MILLIGRAM
     Route: 048
     Dates: start: 20230609, end: 20230626
  8. ADALIMUMAB [Suspect]
     Active Substance: ADALIMUMAB
     Indication: Rheumatoid arthritis
     Dosage: 40 MG FORTNIGHTLY?0.4 ML ?PRE-FILLED PEN
     Route: 058
     Dates: start: 20220203, end: 20230815
  9. ACETAMINOPHEN [Suspect]
     Active Substance: ACETAMINOPHEN
  10. METAMIZOLE [Suspect]
     Active Substance: METAMIZOLE
  11. LEVOTHYROXINE SODIUM [Suspect]
     Active Substance: LEVOTHYROXINE SODIUM
     Dosage: 1-0-0 ?DAILY DOSE: 50 MICROGRAM
  12. CALCIUM CARBONATE\CHOLECALCIFEROL [Suspect]
     Active Substance: CALCIUM CARBONATE\CHOLECALCIFEROL
     Dosage: 1-0-0
  13. FOLIC ACID [Suspect]
     Active Substance: FOLIC ACID
     Dosage: 2 TABS WEEKLY (TUESDAY)
  14. ZALDIAR [Suspect]
     Active Substance: ACETAMINOPHEN\TRAMADOL HYDROCHLORIDE
     Dosage: 1-0-1
  15. ACTONEL [Suspect]
     Active Substance: RISEDRONATE SODIUM
  16. PREGABALIN [Suspect]
     Active Substance: PREGABALIN
     Dosage: 1-0-1?DAILY DOSE: 150 MILLIGRAM
  17. ENALAPRIL [Suspect]
     Active Substance: ENALAPRIL
     Dosage: 1-0-1?DAILY DOSE: 10 MILLIGRAM
  18. ACTONEL [Suspect]
     Active Substance: RISEDRONATE SODIUM

REACTIONS (5)
  - Pancytopenia [Recovered/Resolved]
  - Acute kidney injury [Unknown]
  - Cachexia [Recovered/Resolved]
  - Inappropriate antidiuretic hormone secretion [Unknown]
  - Hypertension [Unknown]

NARRATIVE: CASE EVENT DATE: 20230725
